FAERS Safety Report 4435293-8 (Version None)
Quarter: 2004Q3

REPORT INFORMATION
  Report Type: 
  Country: None (occurrence: None)
  Receive Date: 20040826
  Receipt Date: 20040810
  Transmission Date: 20050211
  Serious: Yes (Other)
  Sender: FDA-Public Use
  Company Number: 2004-UK-00771UK

PATIENT
  Age: 76 Year
  Sex: Male

DRUGS (7)
  1. PRAMIPEXOLE (UK) (PRAMIPEXOLE DIHYDROCHLORIDE) (NR) [Suspect]
     Indication: PARKINSON'S DISEASE
     Dosage: 0.7MG THREE TIMES DAILY
     Route: 048
     Dates: start: 20031101
  2. MADOPAR (MADOPAR) [Concomitant]
  3. TRIHEXYPHENIDYL HCL [Concomitant]
  4. METFORMIN HCL [Concomitant]
  5. LISINOPRIL [Concomitant]
  6. CO-CODAMOL (PANADEINE CO) [Concomitant]
  7. GLICLAZIDE (GLICLAZIDE) [Concomitant]

REACTIONS (1)
  - DEEP VEIN THROMBOSIS [None]
